FAERS Safety Report 20916662 (Version 1)
Quarter: 2022Q2

REPORT INFORMATION
  Report Type: Spontaneous
  Country: CN (occurrence: CN)
  Receive Date: 20220605
  Receipt Date: 20220605
  Transmission Date: 20220721
  Serious: Yes (Hospitalization, Other)
  Sender: FDA-Public Use
  Company Number: CN-AMGEN-CHNSP2022094374

PATIENT

DRUGS (2)
  1. EPOETIN ALFA [Suspect]
     Active Substance: ERYTHROPOIETIN
     Indication: Nephrogenic anaemia
     Dosage: UNK
     Route: 065
  2. FERRITIN [Concomitant]
     Active Substance: FERRITIN

REACTIONS (9)
  - Cardiac failure [Recovering/Resolving]
  - Hyperkalaemia [Unknown]
  - Therapeutic product effect incomplete [Unknown]
  - Treatment noncompliance [Unknown]
  - Diarrhoea [Unknown]
  - Liver function test abnormal [Unknown]
  - Hypertension [Unknown]
  - Nausea [Unknown]
  - Dizziness [Unknown]
